FAERS Safety Report 8517297-9 (Version None)
Quarter: 2012Q3

REPORT INFORMATION
  Report Type: 
  Country: None (occurrence: None)
  Receive Date: 20120718
  Receipt Date: 20120713
  Transmission Date: 20120928
  Serious: Yes (Disabling)
  Sender: FDA-Public Use
  Company Number: FR-PFIZER INC-2012161988

PATIENT
  Age: 79 Year
  Sex: Female

DRUGS (7)
  1. HYDROCORTISONE [Suspect]
     Indication: RENAL TUBULAR DISORDER
     Dosage: 20 MG IN THE MORNING AND 10 MG AT MIDDAY
     Route: 048
     Dates: start: 20111001
  2. VITAMIN D [Suspect]
     Dosage: 100000 IU, MONTHLY
     Route: 048
     Dates: start: 20101126
  3. CALCIUM [Suspect]
     Dosage: 500 MG, 2X/DAY
     Route: 048
     Dates: start: 20100501
  4. XOLAIR [Suspect]
     Indication: ASTHMA
     Dosage: 225 MG, EVERY OTHER WEEK
     Route: 058
     Dates: start: 20091001
  5. SOLU-MEDROL [Suspect]
     Indication: RENAL TUBULAR DISORDER
     Dosage: UNK
     Route: 048
     Dates: start: 20110601, end: 20111001
  6. SYMBICORT [Suspect]
     Indication: ASTHMA
     Dosage: 1 DF, 2X/DAY
     Route: 055
     Dates: start: 20010101
  7. SINGULAIR [Suspect]
     Indication: ASTHMA
     Dosage: 10 MG, 1X/DAY
     Route: 048
     Dates: start: 20010101

REACTIONS (1)
  - TENDONITIS [None]
